FAERS Safety Report 16117696 (Version 4)
Quarter: 2020Q2

REPORT INFORMATION
  Report Type: Spontaneous
  Country: FR (occurrence: FR)
  Receive Date: 20190326
  Receipt Date: 20200616
  Transmission Date: 20200713
  Serious: Yes (Death, Hospitalization)
  Sender: FDA-Public Use
  Company Number: PHHY2019FR067782

PATIENT
  Age: 79 Year
  Sex: Male

DRUGS (6)
  1. SPIRONOLACTONE ARROW [Suspect]
     Active Substance: SPIRONOLACTONE
     Indication: GENERALISED OEDEMA
     Dosage: 25 MG, QD
     Route: 048
     Dates: start: 20190211, end: 20190214
  2. FUROSEMIDE. [Concomitant]
     Active Substance: FUROSEMIDE
     Indication: GENERALISED OEDEMA
     Dosage: 500 MG, QD
     Route: 048
  3. PREVISCAN [Concomitant]
     Indication: GENERALISED OEDEMA
     Route: 048
  4. LANSOPRAZOLE. [Concomitant]
     Active Substance: LANSOPRAZOLE
     Indication: GENERALISED OEDEMA
     Dosage: 30 MG, QD
     Route: 048
  5. BISOPROLOL ARROW [Concomitant]
     Active Substance: BISOPROLOL
     Indication: GENERALISED OEDEMA
     Dosage: 1 DF, QD
     Route: 048
  6. ESIDREX [Suspect]
     Active Substance: HYDROCHLOROTHIAZIDE
     Indication: GENERALISED OEDEMA
     Dosage: 25 MG, QD
     Route: 048
     Dates: start: 20190211, end: 20190214

REACTIONS (1)
  - Pancytopenia [Fatal]

NARRATIVE: CASE EVENT DATE: 20190215
